FAERS Safety Report 7973701-6 (Version None)
Quarter: 2011Q4

REPORT INFORMATION
  Report Type: 
  Country: None (occurrence: None)
  Receive Date: 20111123
  Receipt Date: 20110722
  Transmission Date: 20120403
  Serious: Yes (Other)
  Sender: FDA-Public Use
  Company Number: 920574

PATIENT
  Age: 62 Year
  Sex: Male
  Weight: 121.25 kg

DRUGS (5)
  1. AMIODARONE HCL [Concomitant]
  2. VANCOMYCIN HCL [Suspect]
     Indication: INFECTION
     Dosage: 1250 MG, Q12 INTRAVENOUS (NOT OTHERWISE SPECIFIED)
     Route: 042
     Dates: start: 20110509
  3. (ALL OTHER THERAPEUTIC PRODUCTS) [Concomitant]
  4. METOCLOPRAMIDE [Concomitant]
  5. METOPROLOL TARTRATE [Concomitant]

REACTIONS (1)
  - RENAL FAILURE ACUTE [None]
